FAERS Safety Report 15741909 (Version 4)
Quarter: 2019Q1

REPORT INFORMATION
  Report Type: Report from Study
  Country: US (occurrence: US)
  Receive Date: 20181219
  Receipt Date: 20190221
  Transmission Date: 20190417
  Serious: Yes (Other)
  Sender: FDA-Public Use
  Company Number: US-BAYER-2018-233934

PATIENT
  Age: 57 Year
  Sex: Female

DRUGS (4)
  1. STIVARGA [Suspect]
     Active Substance: REGORAFENIB
     Indication: COLON CANCER
     Dosage: 120 MG DAILY, 21 DAYS ON 7 DAYS OFF
     Route: 048
     Dates: start: 20181211, end: 2018
  2. STIVARGA [Suspect]
     Active Substance: REGORAFENIB
     Indication: COLON CANCER
     Dosage: 120 MG, QD (21 DAYS ON 7 DAYS OFF)
     Route: 048
     Dates: start: 2018
  3. STIVARGA [Suspect]
     Active Substance: REGORAFENIB
     Indication: COLON CANCER
     Dosage: 80 MG DAILY, 21 DAYS ON 7 DAYS OFF
     Route: 048
     Dates: start: 20181204, end: 20181210
  4. STIVARGA [Suspect]
     Active Substance: REGORAFENIB
     Indication: COLON CANCER
     Dosage: 80 MG, QD
     Route: 048
     Dates: start: 20181218, end: 2018

REACTIONS (16)
  - Neuropathy peripheral [None]
  - Nausea [Not Recovered/Not Resolved]
  - Dry skin [None]
  - Epistaxis [None]
  - Constipation [Not Recovered/Not Resolved]
  - Blood pressure increased [None]
  - Fatigue [Not Recovered/Not Resolved]
  - Diarrhoea [None]
  - Dysphonia [None]
  - Hepatic enzyme increased [None]
  - Weight decreased [None]
  - Hypoaesthesia [None]
  - Off label use [None]
  - Stomatitis [None]
  - Decreased appetite [None]
  - Dry mouth [None]

NARRATIVE: CASE EVENT DATE: 201812
